FAERS Safety Report 20215331 (Version 2)
Quarter: 2022Q1

REPORT INFORMATION
  Report Type: Report from Study
  Country: US (occurrence: US)
  Receive Date: 20211222
  Receipt Date: 20220117
  Transmission Date: 20220423
  Serious: Yes (Hospitalization)
  Sender: FDA-Public Use
  Company Number: US-JNJFOC-20211236620

PATIENT
  Age: 31 Year
  Sex: Female
  Weight: 71.4 kg

DRUGS (2)
  1. EPOPROSTENOL SODIUM [Suspect]
     Active Substance: EPOPROSTENOL SODIUM
     Indication: Pulmonary arterial hypertension
     Route: 042
  2. AMBRISENTAN [Concomitant]
     Active Substance: AMBRISENTAN

REACTIONS (4)
  - Pain in jaw [Unknown]
  - Pain in extremity [Unknown]
  - Application site pruritus [Unknown]
  - Application site rash [Unknown]
